FAERS Safety Report 10765995 (Version 1)
Quarter: 2015Q1

REPORT INFORMATION
  Report Type: Spontaneous
  Country: US (occurrence: None)
  Receive Date: 20150204
  Receipt Date: 20150204
  Transmission Date: 20150721
  Serious: Yes (Hospitalization)
  Sender: FDA-Public Use
  Company Number: None

PATIENT
  Age: 67 Year
  Sex: Male
  Weight: 90.4 kg

DRUGS (13)
  1. LANTUS [Suspect]
     Active Substance: INSULIN GLARGINE
     Indication: DIABETES MELLITUS
     Dosage: CHRONIC?40 UNITS DAILY SQ
     Route: 058
  2. LANOXIN [Concomitant]
     Active Substance: DIGOXIN
  3. WARFARIN [Concomitant]
     Active Substance: WARFARIN
  4. HUMALOG [Suspect]
     Active Substance: INSULIN LISPRO
     Indication: DIABETES MELLITUS
     Dosage: CHRONIC?15-30 UINITS WITH MEALS SQ
     Route: 058
  5. KLOR -CON [Concomitant]
  6. ZYLOPRIM [Concomitant]
     Active Substance: ALLOPURINOL
  7. AMLODIPINE [Concomitant]
     Active Substance: AMLODIPINE BESYLATE
  8. CAPOTEN [Concomitant]
     Active Substance: CAPTOPRIL
  9. VITD [Concomitant]
  10. PREVACID [Concomitant]
     Active Substance: LANSOPRAZOLE
  11. ALDACTONE [Concomitant]
     Active Substance: SPIRONOLACTONE
  12. CARDURA [Concomitant]
     Active Substance: DOXAZOSIN MESYLATE
  13. LASIX [Concomitant]
     Active Substance: FUROSEMIDE

REACTIONS (3)
  - Hypoglycaemia [None]
  - Blood glucose increased [None]
  - Hypophagia [None]

NARRATIVE: CASE EVENT DATE: 20141106
